FAERS Safety Report 9114613 (Version 1)
Quarter: 2013Q1

REPORT INFORMATION
  Report Type: Spontaneous
  Country: ES (occurrence: None)
  Receive Date: 20130129
  Receipt Date: 20130129
  Transmission Date: 20140127
  Serious: Yes (Other)
  Sender: FDA-Public Use
  Company Number: AUR-APL-2013-00945

PATIENT
  Age: 44 Year
  Sex: Female

DRUGS (6)
  1. FLUCONAZOLE [Suspect]
     Indication: VULVOVAGINAL CANDIDIASIS
     Dosage: 100MG, 1 D
  2. CICLOSPORIN (CICLOSPORIN) [Suspect]
     Indication: IMMUNOSUPPRESSION
     Dosage: 700 MG (350 MG, 2 IN 1 D),ORAL
     Route: 048
  3. LOPINAVIR (+) RITONAVIR [Suspect]
     Indication: ANTIRETROVIRAL THERAPY
     Dosage: 300/75MG (2 IN 1 D), UNKNOWN
  4. LAMIVUDINA(LAMIVUDINE) [Concomitant]
  5. MYCOPHENOLATE(MYCOPHENOLATE MOFETIL) [Concomitant]
  6. RALTEGRAVIR(RALTEGRAVIR) [Concomitant]

REACTIONS (5)
  - Drug interaction [None]
  - Blood bilirubin increased [None]
  - Anxiety [None]
  - Drug level increased [None]
  - Hepatotoxicity [None]
